FAERS Safety Report 20315118 (Version 1)
Quarter: 2022Q1

REPORT INFORMATION
  Report Type: Spontaneous
  Country: CN (occurrence: CN)
  Receive Date: 20220110
  Receipt Date: 20220110
  Transmission Date: 20220424
  Serious: Yes (Life-Threatening)
  Sender: FDA-Public Use
  Company Number: CN-PFIZER INC-202101872123

PATIENT
  Age: 19 Month
  Sex: Male
  Weight: 14 kg

DRUGS (2)
  1. AZITHROMYCIN [Suspect]
     Active Substance: AZITHROMYCIN
     Indication: Pneumonia
     Dosage: 0.14 G, 1X/DAY
     Route: 041
     Dates: start: 20211221, end: 20211221
  2. AMBROXOL HYDROCHLORIDE [Concomitant]
     Active Substance: AMBROXOL HYDROCHLORIDE
     Indication: Pneumonia
     Dosage: 7.5 MG, 1X/DAY
     Route: 041
     Dates: start: 20211221, end: 20211221

REACTIONS (5)
  - Upper airway obstruction [Recovering/Resolving]
  - Pallor [Unknown]
  - Lip swelling [Unknown]
  - Flushing [Unknown]
  - Off label use [Unknown]

NARRATIVE: CASE EVENT DATE: 20211221
